FAERS Safety Report 15127382 (Version 1)
Quarter: 2018Q3

REPORT INFORMATION
  Report Type: Spontaneous
  Country: IT (occurrence: IT)
  Receive Date: 20180710
  Receipt Date: 20180710
  Transmission Date: 20181010
  Serious: Yes (Other)
  Sender: FDA-Public Use
  Company Number: IT-MYLANLABS-2018M1048274

PATIENT
  Age: 62 Year
  Sex: Female

DRUGS (2)
  1. LENALIDOMIDE [Concomitant]
     Active Substance: LENALIDOMIDE
     Indication: MANTLE CELL LYMPHOMA
     Dosage: 25 MG, UNK,25 MG ON DAYS 1?21 OF 28?D CYCLE, UNKNOWN FREQ.
     Route: 065
  2. BENDAMUSTINE HYDROCHLORIDE. [Suspect]
     Active Substance: BENDAMUSTINE HYDROCHLORIDE
     Indication: MANTLE CELL LYMPHOMA
     Dosage: 90 MG/MQ ON DAYS 1?2 OF 21?D CYCLE
     Route: 042

REACTIONS (2)
  - Off label use [Unknown]
  - Swelling [Recovered/Resolved]
